FAERS Safety Report 8419330 (Version 3)
Quarter: 2013Q3

REPORT INFORMATION
  Report Type: Spontaneous
  Country: JP (occurrence: JP)
  Receive Date: 20120221
  Receipt Date: 20130925
  Transmission Date: 20140515
  Serious: Yes (Hospitalization)
  Sender: FDA-Public Use
  Company Number: PHHY2011JP111289

PATIENT
  Age: 74 Year
  Sex: Male

DRUGS (1)
  1. RIVASTIGMINE [Suspect]
     Indication: DEMENTIA ALZHEIMER^S TYPE
     Dosage: 4.5 MG/24 HOURS
     Route: 062
     Dates: start: 20110914, end: 20110927

REACTIONS (14)
  - Shock [Unknown]
  - Dehydration [Recovered/Resolved]
  - Blood pressure decreased [Unknown]
  - Acute prerenal failure [Unknown]
  - Gastrointestinal haemorrhage [Recovered/Resolved]
  - Faeces discoloured [Unknown]
  - Haematochezia [Unknown]
  - Melaena [Recovered/Resolved]
  - Anaemia [Recovering/Resolving]
  - Ecchymosis [Unknown]
  - Oedema mucosal [Unknown]
  - Altered state of consciousness [Unknown]
  - Aspartate aminotransferase increased [Recovered/Resolved]
  - Alanine aminotransferase increased [Recovered/Resolved]
